FAERS Safety Report 5485999-7 (Version None)
Quarter: 2007Q4

REPORT INFORMATION
  Report Type: 
  Country: None (occurrence: None)
  Receive Date: 20071015
  Receipt Date: 20071001
  Transmission Date: 20080405
  Serious: Yes (Hospitalization)
  Sender: FDA-Public Use
  Company Number: US-GENENTECH-249426

PATIENT
  Sex: Male

DRUGS (6)
  1. BEVACIZUMAB [Suspect]
     Indication: DIFFUSE LARGE B-CELL LYMPHOMA
     Dosage: 15 MG/KG, Q21D
     Route: 042
     Dates: start: 20070620
  2. RITUXAN [Suspect]
     Indication: DIFFUSE LARGE B-CELL LYMPHOMA
     Dosage: 375 MG/M2, Q21D
     Route: 042
     Dates: start: 20070620
  3. CYCLOPHOSPHAMIDE [Suspect]
     Indication: DIFFUSE LARGE B-CELL LYMPHOMA
     Dosage: 750 MG/M2, Q21D
     Route: 042
     Dates: start: 20070620
  4. DOXORUBICIN HCL [Suspect]
     Indication: DIFFUSE LARGE B-CELL LYMPHOMA
     Dosage: 50 MG/M2, Q21D
     Route: 042
     Dates: start: 20070620
  5. VINCRISTINE [Suspect]
     Indication: DIFFUSE LARGE B-CELL LYMPHOMA
     Dosage: 1.4 MG/M2, Q21D
     Route: 042
     Dates: start: 20070620
  6. PREDNISOLONE [Suspect]
     Indication: DIFFUSE LARGE B-CELL LYMPHOMA
     Dosage: 100 MG, Q21D
     Route: 048
     Dates: start: 20070620

REACTIONS (18)
  - ASTHENIA [None]
  - CONFUSIONAL STATE [None]
  - DYSPHAGIA [None]
  - FAECAL INCONTINENCE [None]
  - FATIGUE [None]
  - LETHARGY [None]
  - LYMPHOMA [None]
  - MALAISE [None]
  - MUSCULAR WEAKNESS [None]
  - NEUROPATHY [None]
  - NEUTROPHIL COUNT DECREASED [None]
  - ODYNOPHAGIA [None]
  - OESOPHAGITIS [None]
  - PERIPHERAL ISCHAEMIA [None]
  - PLEURAL EFFUSION [None]
  - REVERSIBLE POSTERIOR LEUKOENCEPHALOPATHY SYNDROME [None]
  - URINARY INCONTINENCE [None]
  - WHITE BLOOD CELL COUNT DECREASED [None]
